FAERS Safety Report 7084733-7 (Version None)
Quarter: 2010Q4

REPORT INFORMATION
  Report Type: 
  Country: None (occurrence: None)
  Receive Date: 20101104
  Receipt Date: 20101028
  Transmission Date: 20110411
  Serious: Yes (Hospitalization, Other)
  Sender: FDA-Public Use
  Company Number: US-MERCK-1004USA00044

PATIENT
  Age: 59 Year
  Sex: Female
  Weight: 73 kg

DRUGS (3)
  1. FOSAMAX [Suspect]
     Indication: OSTEOPOROSIS
     Route: 048
     Dates: start: 20040101, end: 20090101
  2. FOSAMAX PLUS D [Suspect]
     Indication: OSTEOPOROSIS
     Route: 048
     Dates: start: 20060501, end: 20080501
  3. ACTONEL [Concomitant]
     Indication: OSTEOPOROSIS
     Route: 065
     Dates: start: 20060101, end: 20060501

REACTIONS (83)
  - ABSCESS [None]
  - ADVERSE EVENT [None]
  - ANXIETY [None]
  - ATROPHIC VULVOVAGINITIS [None]
  - AUTOIMMUNE THROMBOCYTOPENIA [None]
  - BLINDNESS UNILATERAL [None]
  - BONE DENSITY DECREASED [None]
  - BREAST MASS [None]
  - BRUXISM [None]
  - CHILLS [None]
  - CHRONIC GASTROINTESTINAL BLEEDING [None]
  - CINCHONISM [None]
  - CONTUSION [None]
  - CONVULSION [None]
  - CYSTITIS INTERSTITIAL [None]
  - DEMENTIA [None]
  - DEPRESSION [None]
  - DERMATITIS ALLERGIC [None]
  - DIPLOPIA [None]
  - DRUG HYPERSENSITIVITY [None]
  - DRUG INTOLERANCE [None]
  - DRY MOUTH [None]
  - DYSPAREUNIA [None]
  - DYSURIA [None]
  - EAR PAIN [None]
  - ERYTHEMA [None]
  - FALL [None]
  - GASTROOESOPHAGEAL REFLUX DISEASE [None]
  - GINGIVAL DISORDER [None]
  - GINGIVAL SWELLING [None]
  - GLOSSODYNIA [None]
  - HAEMATEMESIS [None]
  - HAEMATOMA [None]
  - HAEMORRHOIDS [None]
  - HALLUCINATION [None]
  - HALLUCINATION, AUDITORY [None]
  - HODGKIN'S DISEASE [None]
  - IMPAIRED HEALING [None]
  - INFECTION [None]
  - INJECTION SITE ABSCESS [None]
  - INTENTIONAL SELF-INJURY [None]
  - IRON DEFICIENCY ANAEMIA [None]
  - LARGE INTESTINAL ULCER [None]
  - LIMB INJURY [None]
  - MUSCLE SPASMS [None]
  - MUSCULAR WEAKNESS [None]
  - NON-HODGKIN'S LYMPHOMA [None]
  - OCULAR HYPERAEMIA [None]
  - OESOPHAGITIS [None]
  - ORAL CAVITY FISTULA [None]
  - ORAL DISORDER [None]
  - ORAL INFECTION [None]
  - OSTEOMYELITIS [None]
  - OSTEONECROSIS OF JAW [None]
  - OSTEOPENIA [None]
  - PAIN [None]
  - PAIN IN EXTREMITY [None]
  - PALPITATIONS [None]
  - PELVIC ADHESIONS [None]
  - PELVIC PAIN [None]
  - POOR VENOUS ACCESS [None]
  - RASH [None]
  - RETINAL EXUDATES [None]
  - RHEUMATOID ARTHRITIS [None]
  - RHINITIS [None]
  - SENSITIVITY OF TEETH [None]
  - SKIN LACERATION [None]
  - SLEEP DISORDER [None]
  - SPLEEN DISORDER [None]
  - STOMATITIS [None]
  - SYNCOPE [None]
  - TEMPOROMANDIBULAR JOINT SYNDROME [None]
  - TINNITUS [None]
  - TOOTH DISORDER [None]
  - TOOTH FRACTURE [None]
  - TOOTH LOSS [None]
  - TOOTHACHE [None]
  - TRISMUS [None]
  - URINARY RETENTION [None]
  - URTICARIA [None]
  - VISION BLURRED [None]
  - VITAMIN B12 DEFICIENCY [None]
  - VULVOVAGINAL DRYNESS [None]
